FAERS Safety Report 23650934 (Version 1)
Quarter: 2024Q1

REPORT INFORMATION
  Report Type: Spontaneous
  Country: EG (occurrence: EG)
  Receive Date: 20240320
  Receipt Date: 20240320
  Transmission Date: 20240410
  Serious: Yes (Other)
  Sender: FDA-Public Use
  Company Number: EG-BIOCON BIOLOGICS LIMITED-BBL2024001629

PATIENT

DRUGS (5)
  1. OGIVRI [Suspect]
     Active Substance: TRASTUZUMAB-DKST
     Indication: Breast cancer
     Dosage: 584 MG, Q3W,  INFUSION, REPEATED EVERY 21 DAYS
     Route: 042
  2. OGIVRI [Suspect]
     Active Substance: TRASTUZUMAB-DKST
     Dosage: UNK, DAY 1 OF THE 2ND CYCLE
     Route: 042
     Dates: start: 20231127
  3. OGIVRI [Suspect]
     Active Substance: TRASTUZUMAB-DKST
     Dosage: UNK, AFTER 2ND CYCLE OF OGIVRI
     Route: 042
     Dates: start: 20231225
  4. OGIVRI [Suspect]
     Active Substance: TRASTUZUMAB-DKST
     Dosage: UNK, WEEK 3 OF THE 3RD CYCLE
     Route: 042
     Dates: start: 20240101
  5. PACLITAXEL [Suspect]
     Active Substance: PACLITAXEL
     Indication: Breast cancer
     Dosage: 144 MG, (DAY 1,8,15)
     Route: 042

REACTIONS (6)
  - White blood cell count decreased [Unknown]
  - Neutropenia [Unknown]
  - Eye irritation [Not Recovered/Not Resolved]
  - Vertigo [Not Recovered/Not Resolved]
  - Pruritus [Recovered/Resolved]
  - Dizziness [Not Recovered/Not Resolved]

NARRATIVE: CASE EVENT DATE: 20231128
